FAERS Safety Report 17736765 (Version 3)
Quarter: 2020Q2

REPORT INFORMATION
  Report Type: Spontaneous
  Country: US (occurrence: US)
  Receive Date: 20200502
  Receipt Date: 20200604
  Transmission Date: 20200714
  Serious: Yes (Hospitalization, Other)
  Sender: FDA-Public Use
  Company Number: US-AUROBINDO-AUR-APL-2020-021287

PATIENT
  Age: 28 Year
  Sex: Female
  Weight: 55.8 kg

DRUGS (6)
  1. ONDANSETRON HYDROCHLORIDE TABLETS 4 MG [Suspect]
     Active Substance: ONDANSETRON HYDROCHLORIDE
     Indication: VOMITING
  2. IBUPROFEN. [Concomitant]
     Active Substance: IBUPROFEN
     Indication: PAIN
     Dosage: UNK
     Route: 065
  3. ONDANSETRON HYDROCHLORIDE TABLETS 4 MG [Suspect]
     Active Substance: ONDANSETRON HYDROCHLORIDE
     Indication: NAUSEA
     Dosage: 1 DOSAGE FORMEVERY 12 HOURS AS NEEDED
     Route: 048
     Dates: start: 2018
  4. TYLENOL [Concomitant]
     Active Substance: ACETAMINOPHEN
     Indication: PAIN
     Dosage: UNK
     Route: 065
  5. ADVIL [Concomitant]
     Active Substance: IBUPROFEN
     Indication: PAIN
     Dosage: UNK
     Route: 065
  6. LEVOTHYROXINE. [Concomitant]
     Active Substance: LEVOTHYROXINE
     Indication: HYPOTHYROIDISM
     Dosage: 15 MILLIGRAM, ONCE A DAY
     Route: 065
     Dates: start: 201912

REACTIONS (27)
  - Hallucination [Unknown]
  - Coeliac disease [Unknown]
  - Nervous system disorder [Unknown]
  - Hypoaesthesia [Unknown]
  - Colitis [Unknown]
  - Blood magnesium decreased [Unknown]
  - Thyrotoxic crisis [Unknown]
  - Weight fluctuation [Unknown]
  - Pelvic inflammatory disease [Unknown]
  - General physical health deterioration [Unknown]
  - Cholecystectomy [Unknown]
  - Pain [Not Recovered/Not Resolved]
  - Blood potassium decreased [Unknown]
  - Anaphylactic reaction [Recovered/Resolved]
  - Swollen tongue [Recovered/Resolved]
  - Dyspnoea [Recovered/Resolved]
  - Multiple sclerosis [Unknown]
  - Condition aggravated [Unknown]
  - Throat tightness [Recovered/Resolved]
  - Paraesthesia oral [Unknown]
  - Vomiting [Not Recovered/Not Resolved]
  - Mouth swelling [Recovered/Resolved]
  - Hypothyroidism [Unknown]
  - Goitre [Recovered/Resolved]
  - Swelling [Recovered/Resolved]
  - Nausea [Not Recovered/Not Resolved]
  - Cystitis interstitial [Unknown]

NARRATIVE: CASE EVENT DATE: 2019
